FAERS Safety Report 8884127 (Version 2)
Quarter: 2013Q3

REPORT INFORMATION
  Report Type: Report from Study
  Country: GR (occurrence: GR)
  Receive Date: 20121102
  Receipt Date: 20130912
  Transmission Date: 20140515
  Serious: Yes (Death, Hospitalization)
  Sender: FDA-Public Use
  Company Number: GR-ABBOTT-12P-066-1002256-00

PATIENT
  Age: 83 Year
  Sex: Male
  Weight: 76 kg

DRUGS (14)
  1. ZEMPLAR [Suspect]
     Indication: RENAL FAILURE CHRONIC
     Dosage: 3MCG
     Route: 042
     Dates: start: 20120419, end: 20121010
  2. SINTROM [Concomitant]
     Indication: ATRIAL FIBRILLATION
     Dosage: 1/2 ONCE DAILY
     Route: 048
     Dates: start: 20120910, end: 20121010
  3. CONTROLOC [Concomitant]
     Indication: PROPHYLAXIS
     Route: 048
     Dates: start: 20110815, end: 20121010
  4. CONTROLOC [Concomitant]
     Indication: GASTROINTESTINAL DISORDER
  5. FILICINE [Concomitant]
     Indication: ANAEMIA
     Route: 048
     Dates: start: 1997, end: 20121010
  6. LOPRESOR [Concomitant]
     Indication: HYPERTENSION
     Dosage: 1/4 TWICE DAILY
     Route: 048
     Dates: start: 2001, end: 20121010
  7. LOPRESOR [Concomitant]
     Indication: ATRIAL FIBRILLATION
  8. LEPUR [Concomitant]
     Indication: DYSLIPIDAEMIA
     Route: 048
     Dates: start: 2001, end: 20121010
  9. DIPEN [Concomitant]
     Indication: ATRIAL FIBRILLATION
     Route: 048
     Dates: start: 2001, end: 20121010
  10. RENAGEL [Concomitant]
     Indication: HYPERPHOSPHATAEMIA
     Route: 048
     Dates: start: 2005, end: 20121010
  11. STILNOX [Concomitant]
     Indication: INSOMNIA
     Route: 048
     Dates: start: 2012, end: 20121011
  12. ARANESP [Concomitant]
     Indication: ANAEMIA
     Route: 042
     Dates: start: 2012, end: 20121011
  13. NEUROBION [Concomitant]
     Indication: ANAEMIA
     Dosage: 1 / HEMODIALYSIS
     Route: 042
     Dates: start: 2012, end: 20121011
  14. INTELECTA [Concomitant]
     Indication: ANAEMIA
     Dosage: 1 / HEMODIALYSIS
     Route: 042
     Dates: start: 2012, end: 20121011

REACTIONS (11)
  - Cardiac arrest [Fatal]
  - Muscular weakness [Fatal]
  - Fatigue [Fatal]
  - Diarrhoea [Fatal]
  - Vomiting [Fatal]
  - Leukocytosis [Fatal]
  - Bacteraemia [Fatal]
  - Abdominal pain [Fatal]
  - Sepsis [Fatal]
  - Atrial fibrillation [Fatal]
  - Haematocrit decreased [Fatal]
